FAERS Safety Report 23566362 (Version 1)
Quarter: 2024Q1

REPORT INFORMATION
  Report Type: Spontaneous
  Country: GB (occurrence: GB)
  Receive Date: 20240226
  Receipt Date: 20240226
  Transmission Date: 20240409
  Serious: Yes (Disabling)
  Sender: FDA-Public Use
  Company Number: None

PATIENT
  Age: 62 Year
  Sex: Female

DRUGS (1)
  1. DUPILUMAB [Suspect]
     Active Substance: DUPILUMAB
     Indication: Asthma
     Dosage: 200 MG, QOW
     Dates: start: 20230929, end: 20240205

REACTIONS (3)
  - Angular cheilitis [Not Recovered/Not Resolved]
  - Arthralgia [Not Recovered/Not Resolved]
  - Eosinophilia [Recovering/Resolving]

NARRATIVE: CASE EVENT DATE: 20231001
